FAERS Safety Report 4433896-8 (Version None)
Quarter: 2004Q3

REPORT INFORMATION
  Report Type: 
  Country: None (occurrence: None)
  Receive Date: 20040825
  Receipt Date: 20040805
  Transmission Date: 20050211
  Serious: No
  Sender: FDA-Public Use
  Company Number: A02200402431

PATIENT
  Age: 21 Year
  Sex: Female

DRUGS (1)
  1. ZOLPIDEM TARTRATE [Suspect]
     Indication: SEXUAL ASSAULT VICTIM
     Route: 048

REACTIONS (1)
  - SEXUAL ASSAULT VICTIM [None]
